FAERS Safety Report 8022291-0 (Version None)
Quarter: 2012Q1

REPORT INFORMATION
  Report Type: 
  Country: None (occurrence: None)
  Receive Date: 20120104
  Receipt Date: 20111228
  Transmission Date: 20120608
  Serious: Yes (Other)
  Sender: FDA-Public Use
  Company Number: PHHY2011VE113816

PATIENT
  Sex: Female

DRUGS (3)
  1. ZOLEDRONOC ACID [Suspect]
     Indication: OSTEOPOROSIS
     Dosage: 5 MG, ONCE A YEAR
     Route: 042
  2. ANASTROZOLE [Concomitant]
     Dosage: 1 UKN(1 TAB DAILY)
  3. EXELON [Concomitant]
     Dosage: 1 UKN(1 PATCH DAILY)
     Route: 062

REACTIONS (1)
  - BREAST CANCER [None]
